FAERS Safety Report 22363579 (Version 2)
Quarter: 2023Q4

REPORT INFORMATION
  Report Type: Spontaneous
  Country: US (occurrence: US)
  Receive Date: 20230525
  Receipt Date: 20231101
  Transmission Date: 20240109
  Serious: No
  Sender: FDA-Public Use
  Company Number: US-UNITED THERAPEUTICS-UNT-2023-010407

PATIENT
  Sex: Female
  Weight: 77.098 kg

DRUGS (8)
  1. TYVASO DPI [Suspect]
     Active Substance: TREPROSTINIL
     Indication: Pulmonary arterial hypertension
     Dosage: 64 ?G, QID
     Dates: start: 2023, end: 2023
  2. TYVASO DPI [Suspect]
     Active Substance: TREPROSTINIL
     Dosage: UNK
     Dates: start: 20230315, end: 202305
  3. TYVASO DPI [Suspect]
     Active Substance: TREPROSTINIL
     Indication: Pulmonary arterial hypertension
     Dosage: UNK
  4. TYVASO DPI [Suspect]
     Active Substance: TREPROSTINIL
     Dosage: UNK
  5. OFEV [Suspect]
     Active Substance: NINTEDANIB
     Indication: Idiopathic pulmonary fibrosis
     Dosage: 150 MG, BID
     Route: 048
     Dates: start: 20230329
  6. OFEV [Suspect]
     Active Substance: NINTEDANIB
     Indication: Interstitial lung disease
     Dosage: UNK
     Route: 048
  7. OFEV [Suspect]
     Active Substance: NINTEDANIB
     Dosage: UNK
     Route: 048
  8. OFEV [Suspect]
     Active Substance: NINTEDANIB
     Dosage: UNK
     Route: 048

REACTIONS (10)
  - Oropharyngeal discomfort [Unknown]
  - Sensitivity to weather change [Unknown]
  - Cough [Unknown]
  - Headache [Unknown]
  - Ear pain [Unknown]
  - Oropharyngeal pain [Unknown]
  - Gait disturbance [Recovering/Resolving]
  - Drug intolerance [Unknown]
  - Diarrhoea [Unknown]
  - Nausea [Unknown]

NARRATIVE: CASE EVENT DATE: 20230101
